FAERS Safety Report 24886525 (Version 2)
Quarter: 2025Q1

REPORT INFORMATION
  Report Type: Spontaneous
  Country: US (occurrence: US)
  Receive Date: 20250126
  Receipt Date: 20250222
  Transmission Date: 20250408
  Serious: No
  Sender: SANOFI AVENTIS
  Company Number: US-SA-2025SA020520

PATIENT
  Age: 82 Year
  Sex: Female
  Weight: 83.18 kg

DRUGS (10)
  1. DUPIXENT [Suspect]
     Active Substance: DUPILUMAB
     Indication: Dermatitis atopic
     Dosage: 300 MG, QOW
     Route: 058
     Dates: start: 202409
  2. DUPIXENT [Suspect]
     Active Substance: DUPILUMAB
     Indication: Arthritis
  3. CELEBREX [Concomitant]
     Active Substance: CELECOXIB
  4. CETIRIZINE HCL [Concomitant]
     Active Substance: CETIRIZINE HYDROCHLORIDE
  5. VENLAFAXINE HCL [Concomitant]
     Active Substance: VENLAFAXINE HYDROCHLORIDE
  6. VITAMIN D3 [Concomitant]
     Active Substance: CHOLECALCIFEROL
  7. LISINOPRIL [Concomitant]
     Active Substance: LISINOPRIL
  8. SIMVASTATIN [Concomitant]
     Active Substance: SIMVASTATIN
  9. FLUTICASONE PROPIONATE [Concomitant]
     Active Substance: FLUTICASONE PROPIONATE
  10. DESONIDE [Concomitant]
     Active Substance: DESONIDE

REACTIONS (7)
  - Joint range of motion decreased [Unknown]
  - Pain in extremity [Unknown]
  - Blepharitis [Recovered/Resolved]
  - Oral herpes [Unknown]
  - Eye inflammation [Unknown]
  - Arthralgia [Unknown]
  - Product use in unapproved indication [Unknown]
